FAERS Safety Report 14074578 (Version 5)
Quarter: 2017Q4

REPORT INFORMATION
  Report Type: Report from Study
  Country: JP (occurrence: JP)
  Receive Date: 20171010
  Receipt Date: 20171127
  Transmission Date: 20180321
  Serious: Yes (Hospitalization)
  Sender: FDA-Public Use
  Company Number: PHJP2017JP029969

PATIENT
  Age: 11 Year
  Sex: Female
  Weight: 30.2 kg

DRUGS (21)
  1. ILARIS [Suspect]
     Active Substance: CANAKINUMAB
     Indication: STILL^S DISEASE
     Dosage: 4 MG/KG, 4W
     Route: 058
     Dates: start: 20150813
  2. PREDONINE [Concomitant]
     Active Substance: PREDNISOLONE
     Dosage: 5.25 MG, BID
     Route: 048
     Dates: start: 20150619, end: 20150725
  3. PREDONINE [Concomitant]
     Active Substance: PREDNISOLONE
     Dosage: 25 MG, UNK
     Route: 048
     Dates: start: 20150803, end: 20150803
  4. LEUPLIN [Concomitant]
     Active Substance: LEUPROLIDE ACETATE
     Indication: PRECOCIOUS PUBERTY
     Dosage: 1.88 MG, ONCE 4 WEEKS
     Route: 058
     Dates: start: 201408
  5. SODIUM CHLORIDE. [Concomitant]
     Active Substance: SODIUM CHLORIDE
     Indication: PRODUCT USED FOR UNKNOWN INDICATION
     Dosage: 100 ML, UNK
     Route: 041
  6. PREDONINE [Concomitant]
     Active Substance: PREDNISOLONE
     Dosage: 15 MG, UNK
     Route: 048
     Dates: start: 20150802, end: 20150802
  7. PREDONINE [Concomitant]
     Active Substance: PREDNISOLONE
     Dosage: 20 MG, UNK
     Route: 048
     Dates: start: 20150810
  8. ALFAROL [Concomitant]
     Active Substance: ALFACALCIDOL
     Indication: OSTEOPOROSIS PROPHYLAXIS
     Dosage: 0.15 UG, QD
     Route: 048
     Dates: start: 20111222
  9. RHEUMATREX [Suspect]
     Active Substance: METHOTREXATE SODIUM
     Indication: STILL^S DISEASE
     Dosage: UNK
     Route: 048
     Dates: start: 200903
  10. MEIACT [Concomitant]
     Active Substance: CEFDITOREN PIVOXIL
     Indication: PYREXIA
     Dosage: 300 MG, UNK
     Route: 048
     Dates: start: 20150803, end: 20150805
  11. RHEUMATREX [Suspect]
     Active Substance: METHOTREXATE SODIUM
     Dosage: 12 MG, QW
     Route: 048
     Dates: start: 20130914
  12. PREDONINE [Concomitant]
     Active Substance: PREDNISOLONE
     Dosage: 8 MG, QD
     Route: 048
     Dates: start: 20160303, end: 20170525
  13. BRUFEN [Concomitant]
     Active Substance: IBUPROFEN
     Indication: STILL^S DISEASE
     Dosage: 200 MG, TID
     Route: 048
     Dates: start: 20150407
  14. SOLDEM [Concomitant]
     Active Substance: DEXTROSE\POTASSIUM CHLORIDE\SODIUM CHLORIDE\SODIUM LACTATE
     Dosage: 0.7 ML/MIN, UNK
     Route: 041
     Dates: start: 20160305
  15. PREDONINE [Concomitant]
     Active Substance: PREDNISOLONE
     Indication: STILL^S DISEASE
     Dosage: UNK
     Route: 048
     Dates: start: 200903
  16. PREDONINE [Concomitant]
     Active Substance: PREDNISOLONE
     Dosage: 20 MG, UNK
     Route: 048
     Dates: start: 20150729, end: 20150801
  17. PREDONINE [Concomitant]
     Active Substance: PREDNISOLONE
     Dosage: 30 MG, UNK
     Route: 048
     Dates: start: 20150804, end: 20150809
  18. FOLIAMIN [Concomitant]
     Active Substance: FOLIC ACID
     Indication: STILL^S DISEASE
     Dosage: 10 MG, QW
     Route: 048
     Dates: start: 20091227
  19. FAMOTIDINE. [Concomitant]
     Active Substance: FAMOTIDINE
     Indication: PROPHYLAXIS
     Dosage: 10 MG, QD
     Route: 048
     Dates: start: 20120531
  20. SOLDEM [Concomitant]
     Active Substance: DEXTROSE\POTASSIUM CHLORIDE\SODIUM CHLORIDE\SODIUM LACTATE
     Dosage: 0.7 ML/MIN, UNK
     Route: 041
     Dates: start: 20160306, end: 20160306
  21. SOLDEM [Concomitant]
     Active Substance: DEXTROSE\POTASSIUM CHLORIDE\SODIUM CHLORIDE\SODIUM LACTATE
     Indication: PRODUCT USED FOR UNKNOWN INDICATION
     Dosage: 1 ML/MIN, UNK
     Route: 041
     Dates: start: 20160304

REACTIONS (1)
  - Viral infection [Recovered/Resolved]

NARRATIVE: CASE EVENT DATE: 20170928
